FAERS Safety Report 10567692 (Version 1)
Quarter: 2014Q4

REPORT INFORMATION
  Report Type: Spontaneous
  Country: US (occurrence: None)
  Receive Date: 20141105
  Receipt Date: 20141105
  Transmission Date: 20150529
  Serious: Yes (Death, Hospitalization)
  Sender: FDA-Public Use
  Company Number: None

PATIENT
  Age: 66 Year
  Sex: Female
  Weight: 70.8 kg

DRUGS (4)
  1. BEVACIZUMAB [Suspect]
     Active Substance: BEVACIZUMAB
  2. TAXOL [Suspect]
     Active Substance: PACLITAXEL
  3. ALIMTA [Suspect]
     Active Substance: PEMETREXED DISODIUM
  4. CARBOPLATIN. [Suspect]
     Active Substance: CARBOPLATIN

REACTIONS (10)
  - Supraventricular tachycardia [None]
  - Wheezing [None]
  - Respiratory distress [None]
  - Cough [None]
  - Atrial fibrillation [None]
  - Dyspnoea [None]
  - Lethargy [None]
  - Chest X-ray abnormal [None]
  - Breath sounds abnormal [None]
  - Atelectasis [None]

NARRATIVE: CASE EVENT DATE: 20141026
